FAERS Safety Report 17776996 (Version 1)
Quarter: 2020Q2

REPORT INFORMATION
  Report Type: Report from Study
  Country: US (occurrence: US)
  Receive Date: 20200513
  Receipt Date: 20200513
  Transmission Date: 20200714
  Serious: No
  Sender: FDA-Public Use
  Company Number: US-ACADIA PHARMACEUTICALS INC.-ACA-2019-013947

PATIENT
  Age: 76 Year
  Sex: Male

DRUGS (2)
  1. NUPLAZID [Suspect]
     Active Substance: PIMAVANSERIN TARTRATE
     Indication: PARKINSON^S DISEASE
     Dosage: 34 MG, QD
     Route: 048
     Dates: start: 201908
  2. NORTHERA [Suspect]
     Active Substance: DROXIDOPA
     Indication: ORTHOSTATIC HYPOTENSION
     Dosage: 300 MG
     Route: 048
     Dates: start: 20180828

REACTIONS (1)
  - Nonspecific reaction [Not Recovered/Not Resolved]

NARRATIVE: CASE EVENT DATE: 20190826
